FAERS Safety Report 8407386-1 (Version None)
Quarter: 2012Q2

REPORT INFORMATION
  Report Type: 
  Country: None (occurrence: None)
  Receive Date: 20120604
  Receipt Date: 20120531
  Transmission Date: 20120825
  Serious: Yes (Other)
  Sender: FDA-Public Use
  Company Number: US-ROCHE-1058040

PATIENT
  Sex: Male
  Weight: 55.5 kg

DRUGS (2)
  1. SOMATROPIN [Suspect]
     Indication: GROWTH RETARDATION
     Route: 058
     Dates: start: 20100209
  2. FLINTSTONES VITAMINS [Concomitant]
     Route: 048

REACTIONS (1)
  - HYPOACUSIS [None]
